FAERS Safety Report 5855913-0 (Version None)
Quarter: 2008Q3

REPORT INFORMATION
  Report Type: 
  Country: None (occurrence: None)
  Receive Date: 20080821
  Receipt Date: 20080821
  Transmission Date: 20090109
  Serious: Yes (Death)
  Sender: FDA-Public Use
  Company Number: None

PATIENT
  Age: 61 Year
  Sex: Female
  Weight: 40.4 kg

DRUGS (1)
  1. HUMIRA [Suspect]
     Indication: CROHN'S DISEASE
     Dosage: 40 MG Q14 DAYS SQ
     Route: 058
     Dates: start: 20080421, end: 20080611

REACTIONS (14)
  - CEREBROVASCULAR ACCIDENT [None]
  - DEMYELINATION [None]
  - DISEASE PROGRESSION [None]
  - GLIOMATOSIS CEREBRI [None]
  - HAEMOGLOBIN DECREASED [None]
  - HEPATIC ENCEPHALOPATHY [None]
  - ILL-DEFINED DISORDER [None]
  - LEUKOENCEPHALOMYELITIS [None]
  - LEUKOENCEPHALOPATHY [None]
  - LYMPHOMA [None]
  - MULTIPLE SCLEROSIS [None]
  - NERVOUS SYSTEM DISORDER [None]
  - NUCLEAR MAGNETIC RESONANCE IMAGING BRAIN ABNORMAL [None]
  - THERAPEUTIC RESPONSE DECREASED [None]
